FAERS Safety Report 21316624 (Version 1)
Quarter: 2022Q3

REPORT INFORMATION
  Report Type: Spontaneous
  Country: US (occurrence: US)
  Receive Date: 20220911
  Receipt Date: 20220911
  Transmission Date: 20221027
  Serious: No
  Sender: FDA-Public Use
  Company Number: US-SA-SAC20220818001745

PATIENT
  Age: 50 Year
  Sex: Male

DRUGS (7)
  1. DUPIXENT [Suspect]
     Active Substance: DUPILUMAB
     Indication: Asthma
     Dosage: 300 MG, QOW
     Route: 058
     Dates: start: 202112
  2. FLONASE [Suspect]
     Active Substance: FLUTICASONE PROPIONATE
  3. THEOPHYLLINE [Concomitant]
     Active Substance: THEOPHYLLINE
  4. ZYRTEC [Concomitant]
     Active Substance: CETIRIZINE HYDROCHLORIDE
  5. ALLEGRA [Concomitant]
     Active Substance: FEXOFENADINE HYDROCHLORIDE
  6. SODIUM CHLORIDE [Concomitant]
     Active Substance: SODIUM CHLORIDE
  7. XOPENEX [Concomitant]
     Active Substance: LEVALBUTEROL HYDROCHLORIDE

REACTIONS (11)
  - Dyspnoea [Unknown]
  - Fatigue [Unknown]
  - Sinus congestion [Unknown]
  - Condition aggravated [Unknown]
  - Bronchitis [Unknown]
  - Asthma [Unknown]
  - Drug effective for unapproved indication [Unknown]
  - Therapeutic response shortened [Unknown]
  - Abdominal discomfort [Unknown]
  - Tremor [Unknown]
  - Nasal dryness [Unknown]

NARRATIVE: CASE EVENT DATE: 20220809
